FAERS Safety Report 9233646 (Version 2)
Quarter: 2013Q3

REPORT INFORMATION
  Report Type: Report from Study
  Country: BR (occurrence: BR)
  Receive Date: 20130416
  Receipt Date: 20130705
  Transmission Date: 20140515
  Serious: Yes (Hospitalization, Other)
  Sender: FDA-Public Use
  Company Number: PHHY2013BR036203

PATIENT
  Age: 40 Year
  Sex: Female
  Weight: 58 kg

DRUGS (9)
  1. GILENYA [Suspect]
     Indication: MULTIPLE SCLEROSIS
     Dosage: 1 DF, QD
     Route: 048
     Dates: start: 20121213
  2. PROFENID [Concomitant]
     Dosage: 3 DF, QD
     Dates: start: 20130315, end: 20130320
  3. BACLOFEN [Concomitant]
     Indication: MUSCLE SPASMS
     Dosage: 6 DF, QD
     Route: 048
  4. SOLU MEDROL [Concomitant]
     Dosage: 1 G, QD
     Dates: start: 20130315, end: 20130320
  5. TRAMADOL [Concomitant]
     Indication: BACK PAIN
     Dosage: 50 MG, QD
     Route: 048
     Dates: start: 20130315
  6. IBUPROFENO [Concomitant]
  7. DORFLEX [Concomitant]
  8. VALIUM [Concomitant]
     Indication: MUSCLE SPASMS
     Dosage: 5 MG, QD
     Route: 048
  9. VALIUM [Concomitant]
     Indication: ANXIETY

REACTIONS (9)
  - Paraplegia [Unknown]
  - Limb discomfort [Unknown]
  - Muscle spasticity [Not Recovered/Not Resolved]
  - Musculoskeletal discomfort [Unknown]
  - Clonus [Not Recovered/Not Resolved]
  - Tremor [Not Recovered/Not Resolved]
  - Sensation of heaviness [Not Recovered/Not Resolved]
  - Fatigue [Not Recovered/Not Resolved]
  - Back pain [Not Recovered/Not Resolved]
